FAERS Safety Report 7961276-7 (Version None)
Quarter: 2011Q4

REPORT INFORMATION
  Report Type: 
  Country: None (occurrence: None)
  Receive Date: 20111201
  Receipt Date: 20111201
  Transmission Date: 20120403
  Serious: Yes (Hospitalization)
  Sender: FDA-Public Use
  Company Number: None

PATIENT
  Sex: Male
  Weight: 88.4514 kg

DRUGS (7)
  1. IRINOTECAN HCL [Suspect]
     Indication: COLON CANCER METASTATIC
     Dosage: 150MG/M2 IV Q 14 DAYS
     Route: 042
     Dates: start: 20111115
  2. MORPHINE [Concomitant]
  3. BKM 120 [Suspect]
     Indication: COLON CANCER METASTATIC
     Dosage: 50MG PO DAILY
     Route: 048
     Dates: start: 20111116, end: 20111119
  4. MARINOL [Concomitant]
  5. ZOFRAN [Concomitant]
  6. SENOKOT [Concomitant]
  7. COMPAZINE [Concomitant]

REACTIONS (6)
  - NAUSEA [None]
  - VOMITING [None]
  - WOUND SECRETION [None]
  - COLONIC FISTULA [None]
  - ENTEROCUTANEOUS FISTULA [None]
  - CONSTIPATION [None]
